FAERS Safety Report 12884406 (Version 13)
Quarter: 2017Q2

REPORT INFORMATION
  Report Type: Report from Study
  Country: US (occurrence: US)
  Receive Date: 20161026
  Receipt Date: 20170502
  Transmission Date: 20170830
  Serious: Yes (Hospitalization, Other)
  Sender: FDA-Public Use
  Company Number: US-GILEAD-2016-0239258

PATIENT
  Age: 63 Year
  Sex: Female

DRUGS (9)
  1. XARELTO [Concomitant]
     Active Substance: RIVAROXABAN
  2. REMODULIN [Suspect]
     Active Substance: TREPROSTINIL
     Indication: PRODUCT USED FOR UNKNOWN INDICATION
     Dosage: 46 NG, UNK
     Route: 065
  3. REMODULIN [Suspect]
     Active Substance: TREPROSTINIL
     Dosage: 71 NG, UNK
     Route: 065
  4. LASIX [Concomitant]
     Active Substance: FUROSEMIDE
  5. COUMADIN [Concomitant]
     Active Substance: WARFARIN SODIUM
  6. REVATIO [Concomitant]
     Active Substance: SILDENAFIL CITRATE
  7. BUMEX [Concomitant]
     Active Substance: BUMETANIDE
  8. AMBRISENTAN [Suspect]
     Active Substance: AMBRISENTAN
     Dosage: 10 MG, QD
     Route: 065
     Dates: start: 20150817
  9. AMBRISENTAN [Suspect]
     Active Substance: AMBRISENTAN
     Indication: PRODUCT USED FOR UNKNOWN INDICATION
     Dosage: 5 MG, QD
     Route: 065
     Dates: start: 20150807

REACTIONS (20)
  - Pulmonary arterial hypertension [Unknown]
  - Haemoglobin decreased [Unknown]
  - Dyspnoea [Unknown]
  - Hypotension [Unknown]
  - Palpitations [Unknown]
  - Syncope [Unknown]
  - Fluid retention [Unknown]
  - Head injury [Unknown]
  - Oedema peripheral [Not Recovered/Not Resolved]
  - Syncope [Unknown]
  - Dehydration [Unknown]
  - Syncope [Unknown]
  - Oedema [Unknown]
  - Fall [Unknown]
  - Central venous catheterisation [Not Recovered/Not Resolved]
  - Oedema peripheral [Unknown]
  - Pain [Not Recovered/Not Resolved]
  - Weight increased [Unknown]
  - Pneumonia [Unknown]
  - Blood potassium decreased [Unknown]

NARRATIVE: CASE EVENT DATE: 201612
